FAERS Safety Report 16845565 (Version 1)
Quarter: 2019Q3

REPORT INFORMATION
  Report Type: Spontaneous
  Country: US (occurrence: US)
  Receive Date: 20190802
  Receipt Date: 20190802
  Transmission Date: 20191005
  Serious: No
  Sender: FDA-Public Use
  Company Number: None

PATIENT
  Age: 42 Year
  Sex: Male

DRUGS (1)
  1. COSENTYX [Suspect]
     Active Substance: SECUKINUMAB
     Indication: PSORIASIS
     Dates: start: 201901, end: 201905

REACTIONS (3)
  - Fatigue [None]
  - Therapeutic product effect decreased [None]
  - Diarrhoea [None]

NARRATIVE: CASE EVENT DATE: 20190802
